FAERS Safety Report 9146394 (Version 2)
Quarter: 2013Q2

REPORT INFORMATION
  Report Type: Spontaneous
  Country: FR (occurrence: FR)
  Receive Date: 20130307
  Receipt Date: 20130605
  Transmission Date: 20140414
  Serious: Yes (Hospitalization)
  Sender: FDA-Public Use
  Company Number: FR-SANOFI-AVENTIS-2013SA021782

PATIENT
  Age: 41 Year
  Sex: Male

DRUGS (5)
  1. ROVAMYCINE [Suspect]
     Indication: PNEUMONIA
     Dosage: DOSE: 1.5 M?DAILY DOSE 4.5 M
     Route: 042
     Dates: start: 20130131, end: 20130204
  2. ROVAMYCINE [Suspect]
     Indication: PNEUMONIA
     Dosage: DOSE: 3 M?DAILY DOSE: 9 M
     Route: 048
     Dates: start: 20130204, end: 20130206
  3. ENOXAPARIN SODIUM [Suspect]
     Indication: PRODUCT USED FOR UNKNOWN INDICATION
     Route: 058
     Dates: start: 20130204, end: 20130207
  4. ROCEPHINE [Suspect]
     Indication: PNEUMONIA
     Route: 042
     Dates: start: 20130131, end: 20130205
  5. EUPANTOL [Suspect]
     Indication: PRODUCT USED FOR UNKNOWN INDICATION
     Route: 048
     Dates: start: 20130131, end: 20130208

REACTIONS (1)
  - Neutropenia [Recovered/Resolved]
